FAERS Safety Report 7361680-4 (Version None)
Quarter: 2011Q1

REPORT INFORMATION
  Report Type: 
  Country: None (occurrence: None)
  Receive Date: 20110318
  Receipt Date: 20110310
  Transmission Date: 20110831
  Serious: Yes (Other)
  Sender: FDA-Public Use
  Company Number: JP-JNJFOC-20110101101

PATIENT
  Sex: Female
  Weight: 49 kg

DRUGS (25)
  1. CARBOPLATIN [Concomitant]
     Route: 041
  2. CARBOPLATIN [Concomitant]
     Indication: OVARIAN CANCER RECURRENT
     Route: 041
  3. CARBOPLATIN [Concomitant]
     Route: 041
  4. DOXORUBICIN HCL [Suspect]
     Dosage: CYCLE 5
     Route: 042
  5. DOXORUBICIN HCL [Suspect]
     Dosage: CYCLE 6
     Route: 042
  6. SILECE [Concomitant]
     Indication: INSOMNIA
     Route: 048
  7. GOSHA-JINKI-GAN [Concomitant]
     Indication: NEUROPATHY PERIPHERAL
     Route: 048
  8. METHYCOBAL [Concomitant]
     Indication: NEUROPATHY PERIPHERAL
     Route: 048
  9. DECADRON [Concomitant]
     Indication: INFUSION RELATED REACTION
     Route: 041
  10. DOXORUBICIN HCL [Suspect]
     Dosage: CYCLE 4
     Route: 042
  11. GASTER D [Concomitant]
     Indication: GASTRITIS
     Route: 048
  12. MAGNESIUM OXIDE [Concomitant]
     Indication: CONSTIPATION
     Route: 048
  13. CARBOPLATIN [Concomitant]
     Route: 041
  14. CARBOPLATIN [Concomitant]
     Route: 041
  15. DOXORUBICIN HCL [Suspect]
     Dosage: CYCLE 3
     Route: 042
  16. PYDOXAL [Concomitant]
     Indication: NEUROPATHY PERIPHERAL
     Route: 048
  17. DOXORUBICIN HCL [Suspect]
     Indication: OVARIAN CANCER RECURRENT
     Dosage: CYCLE 1
     Route: 042
  18. ASPIRIN [Concomitant]
     Indication: AORTIC VALVE INCOMPETENCE
     Route: 048
  19. DAI-KENCHU-TO [Concomitant]
     Indication: NEUROPATHY PERIPHERAL
     Route: 048
  20. BONALON [Concomitant]
     Indication: OSTEOPOROSIS
     Route: 048
  21. DOXORUBICIN HCL [Suspect]
     Dosage: CYCLE 2
     Route: 042
  22. AMOBAN [Concomitant]
     Indication: INSOMNIA
     Route: 048
  23. LAC-B [Concomitant]
     Indication: CONSTIPATION
     Route: 048
  24. CARBOPLATIN [Concomitant]
     Route: 041
  25. DECADRON [Concomitant]
     Indication: RASH
     Route: 041

REACTIONS (1)
  - BLOOD ALBUMIN DECREASED [None]
